FAERS Safety Report 4798992-4 (Version None)
Quarter: 2005Q4

REPORT INFORMATION
  Report Type: 
  Country: None (occurrence: None)
  Receive Date: 20051014
  Receipt Date: 20051006
  Transmission Date: 20060501
  Serious: Yes (Hospitalization, Other)
  Sender: FDA-Public Use
  Company Number: CA-ABBOTT-05P-028-0313081-00

PATIENT
  Sex: Female
  Weight: 65.421 kg

DRUGS (13)
  1. DILAUDID [Suspect]
     Indication: ANGINA PECTORIS
     Route: 058
     Dates: start: 20050322
  2. DILAUDID [Suspect]
  3. DILAUDID [Suspect]
  4. DILAUDID [Suspect]
  5. EZETROL [Concomitant]
     Indication: DRUG USE FOR UNKNOWN INDICATION
     Route: 048
     Dates: start: 20030101
  6. WARFARIN [Concomitant]
     Indication: DRUG USE FOR UNKNOWN INDICATION
     Route: 048
     Dates: start: 20040101
  7. PANTOPRAZOLE [Concomitant]
     Indication: DRUG USE FOR UNKNOWN INDICATION
     Route: 048
     Dates: start: 20040101
  8. BISOPROLOL FUMARATE [Concomitant]
     Indication: DRUG USE FOR UNKNOWN INDICATION
     Route: 048
     Dates: start: 20040101
  9. FERROUS SULFATE TAB [Concomitant]
     Indication: DRUG USE FOR UNKNOWN INDICATION
     Route: 048
     Dates: start: 20040101
  10. FLUCONAZOLE [Concomitant]
     Indication: DRUG USE FOR UNKNOWN INDICATION
     Route: 048
     Dates: start: 20050301, end: 20050301
  11. CODEINE [Concomitant]
     Indication: ANGINA PECTORIS
     Route: 048
     Dates: start: 20050322
  12. MORPHINE [Concomitant]
     Indication: ANGINA PECTORIS
     Route: 058
     Dates: start: 20050322
  13. NITROGLYCERIN [Concomitant]
     Indication: ANGINA PECTORIS
     Route: 060
     Dates: start: 20050322

REACTIONS (2)
  - BRONCHOSPASM [None]
  - DRUG HYPERSENSITIVITY [None]
